FAERS Safety Report 6827149-8 (Version None)
Quarter: 2010Q3

REPORT INFORMATION
  Report Type: 
  Country: None (occurrence: None)
  Receive Date: 20100709
  Receipt Date: 20100706
  Transmission Date: 20110219
  Serious: Yes (Hospitalization)
  Sender: FDA-Public Use
  Company Number: US-ELI_LILLY_AND_COMPANY-US201007001289

PATIENT
  Sex: Female

DRUGS (4)
  1. HUMALOG MIX 75/25 [Suspect]
     Indication: DIABETES MELLITUS
     Dosage: 45 U, UNK
  2. HUMALOG MIX 75/25 [Suspect]
     Dosage: UNK, AS NEEDED
  3. METFORMIN HCL [Concomitant]
  4. ACARBOSE [Concomitant]

REACTIONS (5)
  - BLOOD CALCIUM INCREASED [None]
  - BLOOD GLUCOSE INCREASED [None]
  - HERPES ZOSTER [None]
  - PARATHYROID DISORDER [None]
  - PNEUMONIA [None]
